FAERS Safety Report 9850502 (Version 2)
Quarter: 2014Q2

REPORT INFORMATION
  Report Type: Spontaneous
  Country: FR (occurrence: FR)
  Receive Date: 20140128
  Receipt Date: 20140520
  Transmission Date: 20141212
  Serious: Yes (Hospitalization)
  Sender: FDA-Public Use
  Company Number: FR-JNJFOC-20140111056

PATIENT
  Age: 55 Year
  Sex: Male

DRUGS (16)
  1. SUFENTA [Suspect]
     Indication: INDUCTION OF ANAESTHESIA
     Route: 042
     Dates: start: 20131204, end: 20131204
  2. TRAMADOL [Suspect]
     Indication: PRODUCT USED FOR UNKNOWN INDICATION
     Route: 065
     Dates: start: 20131204
  3. PARACETAMOL [Suspect]
     Route: 065
  4. PARACETAMOL [Suspect]
     Indication: PRODUCT USED FOR UNKNOWN INDICATION
     Route: 065
  5. EPHEDRIN [Suspect]
     Indication: INDUCTION OF ANAESTHESIA
     Route: 042
     Dates: start: 20131204, end: 20131204
  6. PROPOFOL [Suspect]
     Indication: INDUCTION OF ANAESTHESIA
     Route: 065
  7. CEFOXITIN [Suspect]
     Indication: PRODUCT USED FOR UNKNOWN INDICATION
     Route: 042
     Dates: start: 20131204
  8. AUGMENTIN [Concomitant]
     Route: 065
  9. KARDEGIC [Concomitant]
     Route: 065
  10. ATENOLOL [Concomitant]
     Route: 065
  11. BACLOFENE [Concomitant]
     Route: 065
  12. RIVOTRIL [Concomitant]
     Route: 065
  13. LOVENOX [Concomitant]
     Route: 065
  14. CETORNAN [Concomitant]
     Route: 065
  15. OXYBUTIN [Concomitant]
     Route: 065
  16. PRAVASTATIN [Concomitant]
     Route: 065

REACTIONS (1)
  - Renal failure acute [Recovered/Resolved]
